FAERS Safety Report 11377769 (Version 2)
Quarter: 2015Q3

REPORT INFORMATION
  Report Type: Spontaneous
  Country: US (occurrence: US)
  Receive Date: 20150811
  Receipt Date: 20150903
  Transmission Date: 20151125
  Serious: No
  Sender: FDA-Public Use
  Company Number: US-ELI_LILLY_AND_COMPANY-US200908000998

PATIENT
  Age: 45 Year
  Sex: Male

DRUGS (5)
  1. HUMULIN N [Suspect]
     Active Substance: INSULIN HUMAN
     Dates: start: 2007, end: 200907
  2. HUMULIN R [Suspect]
     Active Substance: INSULIN HUMAN
     Dates: start: 2007, end: 200907
  3. LISINOPRIL. [Concomitant]
     Active Substance: LISINOPRIL
     Indication: DIABETES PROPHYLAXIS
  4. LANTUS [Concomitant]
     Active Substance: INSULIN GLARGINE
     Dosage: 18 U, EACH EVENING
     Route: 058
     Dates: start: 200907
  5. HUMALOG [Suspect]
     Active Substance: INSULIN LISPRO
     Dosage: 12 U, OTHER
     Dates: start: 200908

REACTIONS (2)
  - Blood glucose decreased [Recovered/Resolved]
  - Blood glucose increased [Not Recovered/Not Resolved]

NARRATIVE: CASE EVENT DATE: 200908
